FAERS Safety Report 7515364-X (Version None)
Quarter: 2011Q2

REPORT INFORMATION
  Report Type: 
  Country: None (occurrence: None)
  Receive Date: 20110601
  Receipt Date: 20100625
  Transmission Date: 20111010
  Serious: No
  Sender: FDA-Public Use
  Company Number: US-PFIZER INC-2009228336

PATIENT
  Sex: Female
  Weight: 54.422 kg

DRUGS (16)
  1. FORADIL [Concomitant]
     Indication: CHRONIC OBSTRUCTIVE PULMONARY DISEASE
     Dosage: UNK
  2. PAXIL [Concomitant]
     Indication: DEPRESSION
     Dosage: UNK
  3. FLUOXETINE [Concomitant]
     Dosage: UNK
  4. SIMVASTATIN [Concomitant]
     Indication: BLOOD CHOLESTEROL INCREASED
     Dosage: UNK
  5. PLAVIX [Concomitant]
     Indication: DEPRESSION
     Dosage: UNK
  6. LISINOPRIL [Concomitant]
     Indication: HYPERTENSION
     Dosage: UNK
  7. CHANTIX [Suspect]
     Dosage: UNK
     Route: 048
     Dates: start: 20091001
  8. SEROQUEL [Suspect]
     Indication: DEPRESSION
     Dosage: UNK
  9. ADVAIR DISKUS 100/50 [Suspect]
     Indication: CHRONIC OBSTRUCTIVE PULMONARY DISEASE
     Dosage: UNK
     Dates: end: 20081201
  10. SPIRIVA [Concomitant]
     Indication: CHRONIC OBSTRUCTIVE PULMONARY DISEASE
     Dosage: UNK
  11. VENTOLIN [Concomitant]
     Indication: CHRONIC OBSTRUCTIVE PULMONARY DISEASE
     Dosage: UNK
  12. TRAMADOL [Concomitant]
     Indication: MIGRAINE
     Dosage: UNK
  13. ATIVAN [Concomitant]
     Indication: DEPRESSION
     Dosage: UNK
  14. CHANTIX [Suspect]
     Indication: SMOKING CESSATION THERAPY
     Dosage: UNK
     Route: 048
     Dates: start: 20070101
  15. CHANTIX [Suspect]
     Dosage: 1 MG, 2X/DAY, ONCE IN MORNING AND ONCE IN EVENING
     Route: 048
  16. SKELAXIN [Concomitant]
     Indication: MYALGIA
     Dosage: UNK

REACTIONS (10)
  - DRUG DOSE OMISSION [None]
  - BACK DISORDER [None]
  - INCREASED APPETITE [None]
  - ACCIDENT [None]
  - OROPHARYNGEAL PAIN [None]
  - HYPERTENSION [None]
  - MUSCULOSKELETAL STIFFNESS [None]
  - MUSCLE SPASMS [None]
  - ABNORMAL DREAMS [None]
  - THROAT IRRITATION [None]
